FAERS Safety Report 17424570 (Version 4)
Quarter: 2020Q2

REPORT INFORMATION
  Report Type: Spontaneous
  Country: PL (occurrence: PL)
  Receive Date: 20200217
  Receipt Date: 20200508
  Transmission Date: 20200713
  Serious: Yes (Death, Other)
  Sender: FDA-Public Use
  Company Number: PL-SUN PHARMACEUTICAL INDUSTRIES LTD-2020RR-236985

PATIENT
  Age: 12 Month
  Sex: Male

DRUGS (15)
  1. DICLOFENAC [Suspect]
     Active Substance: DICLOFENAC
     Indication: DESMOID TUMOUR
     Dosage: UNK ()
     Route: 065
  2. TAMOXIFEN [Suspect]
     Active Substance: TAMOXIFEN
     Dosage: UNK ()
     Route: 065
  3. VINCRISTINE [Suspect]
     Active Substance: VINCRISTINE
     Dosage: I^3VA COURSES (IFOSFAMIDE, VINCRISTINE, ACINOMYCIN-D)
     Route: 065
  4. ACTINOMYCIN D [Suspect]
     Active Substance: DACTINOMYCIN
     Dosage: I^3VA COURSES (IFOSFAMIDE, VINCRISTINE, ACINOMYCIN-D)
     Route: 065
  5. IMATINIB. [Suspect]
     Active Substance: IMATINIB MESYLATE
     Dosage: UNK ()
     Route: 065
  6. VINBLASTIN [Suspect]
     Active Substance: VINBLASTINE
     Indication: DESMOID TUMOUR
     Dosage: UNK ()
     Route: 065
  7. VINCRISTINE [Suspect]
     Active Substance: VINCRISTINE
     Indication: DESMOID TUMOUR
     Dosage: 3 VAC COURSES (VINCRISTINE, ACTINOMYCIN-D, CYCLOPHOSPHAMIDE)
     Route: 065
  8. IMATINIB. [Suspect]
     Active Substance: IMATINIB MESYLATE
     Indication: DESMOID TUMOUR
     Dosage: UNK ()
     Route: 065
  9. VINBLASTIN [Suspect]
     Active Substance: VINBLASTINE
     Dosage: UNK ()
     Route: 065
  10. IFOSFAMIDE. [Suspect]
     Active Substance: IFOSFAMIDE
     Indication: FIBROMATOSIS
  11. ACTINOMYCIN D [Suspect]
     Active Substance: DACTINOMYCIN
     Indication: DESMOID TUMOUR
     Dosage: 3 VAC COURSES (VINCRISTINE, ACTINOMYCIN-D, CYCLOPHOSPHAMIDE)
     Route: 065
  12. METHOTREXATE. [Suspect]
     Active Substance: METHOTREXATE
     Indication: DESMOID TUMOUR
     Dosage: UNK ()
     Route: 065
  13. TAMOXIFEN [Suspect]
     Active Substance: TAMOXIFEN
     Indication: DESMOID TUMOUR
     Dosage: UNK ()
     Route: 065
  14. CYCLOPHOSPHAMIDE. [Suspect]
     Active Substance: CYCLOPHOSPHAMIDE
     Indication: DESMOID TUMOUR
     Dosage: 3 VAC COURSES (VINCRISTINE, ACTINOMYCIN-D, CYCLOPHOSPHAMIDE)
     Route: 065
  15. IFOSFAMIDE. [Suspect]
     Active Substance: IFOSFAMIDE
     Indication: DESMOID TUMOUR
     Dosage: I^3VA COURSES (IFOSFAMIDE, VINCRISTINE, ACINOMYCIN-D)
     Route: 065

REACTIONS (6)
  - Malignant neoplasm progression [Fatal]
  - Disease progression [Fatal]
  - Hepatosplenomegaly [Fatal]
  - Desmoid tumour [Fatal]
  - Drug ineffective for unapproved indication [Fatal]
  - Drug resistance [Fatal]
